FAERS Safety Report 16847370 (Version 3)
Quarter: 2020Q3

REPORT INFORMATION
  Report Type: Spontaneous
  Country: US (occurrence: US)
  Receive Date: 20190924
  Receipt Date: 20200909
  Transmission Date: 20201102
  Serious: Yes (Other)
  Sender: FDA-Public Use
  Company Number: US-GILEAD-2019-0429823

PATIENT
  Age: 54 Year
  Sex: Male
  Weight: 83.9 kg

DRUGS (64)
  1. AMITRIPTYLINE [Concomitant]
     Active Substance: AMITRIPTYLINE
  2. HYDROXYZINE [Concomitant]
     Active Substance: HYDROXYZINE HYDROCHLORIDE
  3. LAMIVUDINE. [Concomitant]
     Active Substance: LAMIVUDINE
  4. MULTIVITAMIN (16) [Concomitant]
     Active Substance: VITAMINS
  5. ONDANSETRON [Concomitant]
     Active Substance: ONDANSETRON
  6. OXYCODONE [Concomitant]
     Active Substance: OXYCODONE
  7. TRICOR [ADENOSINE] [Concomitant]
     Active Substance: ADENOSINE
  8. HUMULIN R [Concomitant]
     Active Substance: INSULIN HUMAN
  9. VITAMIN D3 [Concomitant]
     Active Substance: CHOLECALCIFEROL
  10. BANOPHEN [Concomitant]
     Active Substance: DIPHENHYDRAMINE HYDROCHLORIDE
  11. TRUVADA [Suspect]
     Active Substance: EMTRICITABINE\TENOFOVIR DISOPROXIL FUMARATE
     Indication: HIV INFECTION
     Dosage: UNK
     Route: 048
     Dates: start: 2008, end: 2017
  12. VIREAD [Suspect]
     Active Substance: TENOFOVIR DISOPROXIL FUMARATE
     Indication: HIV INFECTION
     Dosage: UNK
     Route: 048
     Dates: start: 2008, end: 2014
  13. NORVIR [Concomitant]
     Active Substance: RITONAVIR
  14. ZIAGEN [Concomitant]
     Active Substance: ABACAVIR SULFATE
  15. DOCUSATE [Concomitant]
     Active Substance: DOCUSATE
  16. LOPERAMIDE [Concomitant]
     Active Substance: LOPERAMIDE
  17. RENVELA [Concomitant]
     Active Substance: SEVELAMER CARBONATE
  18. CHLORTHALIDONE. [Concomitant]
     Active Substance: CHLORTHALIDONE
  19. CODEINE [Concomitant]
     Active Substance: CODEINE
  20. FLUOXETINE [Concomitant]
     Active Substance: FLUOXETINE HYDROCHLORIDE
  21. MIRTAZAPINE. [Concomitant]
     Active Substance: MIRTAZAPINE
  22. JULUCA [Concomitant]
     Active Substance: DOLUTEGRAVIR SODIUM\RILPIVIRINE HYDROCHLORIDE
  23. ALLOPURINOL. [Concomitant]
     Active Substance: ALLOPURINOL
  24. PREZISTA [Concomitant]
     Active Substance: DARUNAVIR ETHANOLATE
  25. ASPIRIN [ACETYLSALICYLIC ACID] [Concomitant]
     Active Substance: ASPIRIN
  26. CITALOPRAM [Concomitant]
     Active Substance: CITALOPRAM HYDROBROMIDE
  27. FERROUS SULFATE. [Concomitant]
     Active Substance: FERROUS SULFATE
  28. JANUVIA [Concomitant]
     Active Substance: SITAGLIPTIN PHOSPHATE
  29. L?METHYLFOLATE [Concomitant]
     Active Substance: LEVOMEFOLIC ACID
  30. BUMETANIDE. [Concomitant]
     Active Substance: BUMETANIDE
  31. EPZICOM [Concomitant]
     Active Substance: ABACAVIR SULFATE\LAMIVUDINE
  32. ISENTRESS [Concomitant]
     Active Substance: RALTEGRAVIR POTASSIUM
  33. ADVAIR HFA [Concomitant]
     Active Substance: FLUTICASONE PROPIONATE\SALMETEROL XINAFOATE
  34. CETIRIZINE [Concomitant]
     Active Substance: CETIRIZINE HYDROCHLORIDE
  35. FEXOFENADINE [Concomitant]
     Active Substance: FEXOFENADINE HYDROCHLORIDE
  36. PRAVASTATIN. [Concomitant]
     Active Substance: PRAVASTATIN
  37. TRIAMCINOLON [TRIAMCINOLONE ACETONIDE] [Concomitant]
  38. VENTOLIN [Concomitant]
     Active Substance: ALBUTEROL SULFATE
  39. ATORVASTATIN [Concomitant]
     Active Substance: ATORVASTATIN
  40. METOPROLOL. [Concomitant]
     Active Substance: METOPROLOL
  41. AMLODIPINE [Concomitant]
     Active Substance: AMLODIPINE BESYLATE
  42. IMODIUM [Concomitant]
     Active Substance: LOPERAMIDE HYDROCHLORIDE
  43. ANDROGEL [Concomitant]
     Active Substance: TESTOSTERONE
  44. CYCLOBENZAPRINE. [Concomitant]
     Active Substance: CYCLOBENZAPRINE
  45. FENOFIBRATE. [Concomitant]
     Active Substance: FENOFIBRATE
  46. HYDRALAZINE [Concomitant]
     Active Substance: HYDRALAZINE HYDROCHLORIDE
  47. KETOCONAZOLE. [Concomitant]
     Active Substance: KETOCONAZOLE
  48. SMZ?TMP [Concomitant]
     Active Substance: SULFAMETHOXAZOLE\TRIMETHOPRIM
  49. TRIMETHOPRIM. [Concomitant]
     Active Substance: TRIMETHOPRIM
  50. ABACAVIR. [Concomitant]
     Active Substance: ABACAVIR
  51. ATENOLOL. [Concomitant]
     Active Substance: ATENOLOL
  52. DIPHENHYDRAMINE. [Concomitant]
     Active Substance: DIPHENHYDRAMINE
  53. LISINOPRIL. [Concomitant]
     Active Substance: LISINOPRIL
  54. METFORMIN [Concomitant]
     Active Substance: METFORMIN HYDROCHLORIDE
  55. PREDNISONE. [Concomitant]
     Active Substance: PREDNISONE
  56. RISPERIDONE. [Concomitant]
     Active Substance: RISPERIDONE
  57. ASPIRIN 81 [Concomitant]
     Active Substance: ASPIRIN
  58. EPIVIR [Concomitant]
     Active Substance: LAMIVUDINE
  59. TRIZIVIR [Concomitant]
     Active Substance: ABACAVIR SULFATE\LAMIVUDINE\ZIDOVUDINE
  60. ACETAMINOPHEN. [Concomitant]
     Active Substance: ACETAMINOPHEN
  61. GABAPENTIN. [Concomitant]
     Active Substance: GABAPENTIN
  62. GLIPIZIDE. [Concomitant]
     Active Substance: GLIPIZIDE
  63. PEG 3350 + ELECTROLYTES [Concomitant]
  64. PERMETHRIN. [Concomitant]
     Active Substance: PERMETHRIN

REACTIONS (11)
  - Anhedonia [Not Recovered/Not Resolved]
  - Anxiety [Not Recovered/Not Resolved]
  - Emotional distress [Not Recovered/Not Resolved]
  - Impaired work ability [Not Recovered/Not Resolved]
  - Chronic kidney disease [Unknown]
  - Quality of life decreased [Not Recovered/Not Resolved]
  - Pain [Not Recovered/Not Resolved]
  - Loss of personal independence in daily activities [Not Recovered/Not Resolved]
  - Economic problem [Not Recovered/Not Resolved]
  - Pollakiuria [Not Recovered/Not Resolved]
  - Decreased activity [Not Recovered/Not Resolved]
